FAERS Safety Report 9643844 (Version 1)
Quarter: 2013Q4

REPORT INFORMATION
  Report Type: Spontaneous
  Country: GB (occurrence: None)
  Receive Date: 20131023
  Receipt Date: 20131023
  Transmission Date: 20140711
  Serious: Yes (Other)
  Sender: FDA-Public Use
  Company Number: KAD201310-001376

PATIENT
  Age: 46 Year
  Sex: Male
  Weight: 92 kg

DRUGS (3)
  1. RIBAVIRIN [Suspect]
     Indication: HEPATITIS C
     Dates: start: 20130205, end: 20130312
  2. INCIVO (TELAPREVIR) [Suspect]
     Indication: HEPATITIS C
     Route: 048
     Dates: start: 20130205, end: 20130312
  3. PEGASYS (PEGINTERFERON ALFA-2A) [Suspect]
     Indication: HEPATITIS C
     Dosage: ONCE IN A WEEK
     Dates: start: 20130205, end: 20130312

REACTIONS (5)
  - Drug dose omission [None]
  - Lethargy [None]
  - Medication error [None]
  - Dyspnoea [None]
  - Off label use [None]
